FAERS Safety Report 18446586 (Version 1)
Quarter: 2020Q4

REPORT INFORMATION
  Report Type: Spontaneous
  Country: US (occurrence: US)
  Receive Date: 20201030
  Receipt Date: 20201030
  Transmission Date: 20210114
  Serious: No
  Sender: FDA-Public Use
  Company Number: None

PATIENT
  Age: 47 Year
  Sex: Female
  Weight: 80.1 kg

DRUGS (1)
  1. CODEINE [Suspect]
     Active Substance: CODEINE

REACTIONS (2)
  - Drug hypersensitivity [None]
  - Nausea [None]
